FAERS Safety Report 9242720 (Version 3)
Quarter: 2013Q3

REPORT INFORMATION
  Report Type: Spontaneous
  Country: IE (occurrence: IE)
  Receive Date: 20130419
  Receipt Date: 20130812
  Transmission Date: 20140515
  Serious: Yes (Hospitalization)
  Sender: FDA-Public Use
  Company Number: IE-ASTRAZENECA-2013SE25674

PATIENT
  Age: 6 Month
  Sex: Male

DRUGS (7)
  1. SYNAGIS [Suspect]
     Indication: PREMATURE BABY
     Route: 030
     Dates: start: 20130123, end: 20130123
  2. SYNAGIS [Suspect]
     Indication: PREMATURE BABY
     Route: 030
     Dates: start: 20130222, end: 201303
  3. SPIRONOLACTONE [Concomitant]
     Route: 048
  4. FERINSOL [Concomitant]
     Route: 048
  5. ABIDEC [Concomitant]
     Route: 048
  6. DIURIL [Concomitant]
  7. CHLORTHIAZIDE [Concomitant]
     Route: 048

REACTIONS (2)
  - Hydrocephalus [Unknown]
  - Subdural haematoma [Recovered/Resolved]
